FAERS Safety Report 6389123-8 (Version None)
Quarter: 2009Q4

REPORT INFORMATION
  Report Type: 
  Country: None (occurrence: None)
  Receive Date: 20091006
  Receipt Date: 20070905
  Transmission Date: 20100525
  Serious: Yes (Hospitalization, Other)
  Sender: FDA-Public Use
  Company Number: US-ASTRAZENECA-2006UW08156

PATIENT
  Age: 560 Month
  Sex: Female
  Weight: 86.2 kg

DRUGS (15)
  1. SEROQUEL [Suspect]
     Indication: SCHIZOPHRENIA
     Dosage: 25MG-50MG
     Route: 048
     Dates: start: 20011001, end: 20040601
  2. SEROQUEL [Suspect]
     Route: 048
     Dates: start: 20020102
  3. SEROQUEL [Suspect]
     Dosage: 25MG-50MG
     Route: 048
     Dates: start: 20050201, end: 20060201
  4. ABILIFY [Concomitant]
     Dates: start: 20030301, end: 20030401
  5. ABILIFY [Concomitant]
     Dates: start: 20070201
  6. GEODON [Concomitant]
     Dosage: 60-80MG
     Dates: start: 20040601, end: 20050201
  7. GEODON [Concomitant]
     Dosage: 60-80MG
     Dates: start: 20070801
  8. HALDOL [Concomitant]
     Dates: start: 19910101, end: 19990101
  9. ZYPREXA [Concomitant]
     Dates: start: 19990101, end: 20010101
  10. WELLBUTRIN XL [Concomitant]
     Dates: start: 20031208
  11. TEMAZEPAM [Concomitant]
     Indication: INSOMNIA
     Dates: start: 20000711
  12. TEMAZEPAM [Concomitant]
     Dosage: STRENGTH - 15 MG, 30 MG  DOSE - 15 MG - 30 MG AT NIGHT AS NEEDED
     Dates: start: 20001108
  13. AMITRIPTYLINE [Concomitant]
     Dates: start: 20000711
  14. LISINOPRIL [Concomitant]
     Dates: start: 20080324
  15. SULAR [Concomitant]
     Indication: BLOOD PRESSURE
     Route: 048
     Dates: start: 20050524

REACTIONS (14)
  - ABDOMINAL PAIN [None]
  - ANXIETY [None]
  - BLOOD CHOLESTEROL INCREASED [None]
  - DIABETIC RETINOPATHY [None]
  - HEADACHE [None]
  - HEPATIC STEATOSIS [None]
  - HYPERTENSION [None]
  - LIVER DISORDER [None]
  - LIVER FUNCTION TEST ABNORMAL [None]
  - PANCREATITIS [None]
  - PANCREATITIS ACUTE [None]
  - ROAD TRAFFIC ACCIDENT [None]
  - TYPE 2 DIABETES MELLITUS [None]
  - UTERINE CANCER [None]
